FAERS Safety Report 4395439-7 (Version None)
Quarter: 2004Q3

REPORT INFORMATION
  Report Type: 
  Country: None (occurrence: None)
  Receive Date: 20040707
  Receipt Date: 20040623
  Transmission Date: 20050211
  Serious: No
  Sender: FDA-Public Use
  Company Number: 04P-167-0258601-00

PATIENT
  Age: 69 Year
  Sex: Male

DRUGS (2)
  1. BIAXIN [Suspect]
     Indication: LOWER RESPIRATORY TRACT INFECTION
     Dosage: 250 MG, 2 IN 1 D, ORAL
     Route: 048
     Dates: start: 20031228, end: 20040110
  2. METRONIDAZOLE [Concomitant]

REACTIONS (1)
  - HYPOMANIA [None]
